FAERS Safety Report 8335759-4 (Version None)
Quarter: 2012Q2

REPORT INFORMATION
  Report Type: 
  Country: None (occurrence: None)
  Receive Date: 20120504
  Receipt Date: 20120423
  Transmission Date: 20120825
  Serious: No
  Sender: FDA-Public Use
  Company Number: US-BIOGENIDEC-2012BI014968

PATIENT
  Sex: Female

DRUGS (1)
  1. TYSABRI [Suspect]
     Indication: MULTIPLE SCLEROSIS
     Route: 042
     Dates: start: 20110627

REACTIONS (8)
  - HEADACHE [None]
  - FALL [None]
  - RENAL DISORDER [None]
  - CONTUSION [None]
  - WEIGHT INCREASED [None]
  - RENAL PAIN [None]
  - NAUSEA [None]
  - NEPHROLITHIASIS [None]
